FAERS Safety Report 9214936 (Version 1)
Quarter: 2013Q2

REPORT INFORMATION
  Report Type: Report from Study
  Country: AU (occurrence: AU)
  Receive Date: 20130405
  Receipt Date: 20130405
  Transmission Date: 20140414
  Serious: Yes (Other)
  Sender: FDA-Public Use
  Company Number: AU-AMGEN-US368280

PATIENT
  Age: 77 Year
  Sex: Male
  Weight: 55 kg

DRUGS (4)
  1. DENOSUMAB [Suspect]
     Indication: PROSTATE CANCER
     Dosage: UNK BLINDED, Q4WK
     Route: 058
     Dates: start: 20070604, end: 20080630
  2. GOSERELIN [Concomitant]
     Dosage: UNK UNK, UNK
     Dates: start: 2004
  3. MITOXANTRONE [Concomitant]
     Dosage: 20 MG, QCYCLE
     Route: 042
     Dates: start: 20070402, end: 20070924
  4. PREDNISOLONE [Concomitant]
     Dosage: 10 MG, QD
     Route: 048
     Dates: start: 20070402, end: 20071018

REACTIONS (1)
  - Gingival erosion [Not Recovered/Not Resolved]
